FAERS Safety Report 14840371 (Version 3)
Quarter: 2018Q2

REPORT INFORMATION
  Report Type: Spontaneous
  Country: BR (occurrence: BR)
  Receive Date: 20180503
  Receipt Date: 20180612
  Transmission Date: 20180711
  Serious: Yes (Hospitalization, Disabling)
  Sender: FDA-Public Use
  Company Number: BR-B.I. PHARMACEUTICALS,INC./RIDGEFIELD-2018-BI-023095

PATIENT
  Age: 61 Year
  Sex: Female
  Weight: 103 kg

DRUGS (14)
  1. ATENSINA [Suspect]
     Active Substance: CLONIDINE
     Indication: HYPERTENSION
     Route: 048
     Dates: end: 20180420
  2. CIPROFIBRATO [Suspect]
     Active Substance: CIPROFIBRATE
     Indication: BLOOD TRIGLYCERIDES INCREASED
     Route: 065
     Dates: start: 201804
  3. ATENOLOL. [Concomitant]
     Active Substance: ATENOLOL
     Indication: HYPERTENSION
     Route: 048
  4. DIAZEPAM. [Concomitant]
     Active Substance: DIAZEPAM
     Indication: DEPRESSION
     Route: 048
     Dates: start: 2013
  5. AMLODIPINA [Concomitant]
     Active Substance: AMLODIPINE BESYLATE
     Indication: HYPERTENSION
     Route: 048
     Dates: end: 2016
  6. TILATIL [Concomitant]
     Active Substance: TENOXICAM
     Indication: OSTEOARTHRITIS
     Route: 048
  7. TILATIL [Concomitant]
     Active Substance: TENOXICAM
     Route: 048
  8. AMITRIPTILINA [Concomitant]
     Active Substance: AMITRIPTYLINE HYDROCHLORIDE
     Route: 048
  9. DIAZEPAM. [Concomitant]
     Active Substance: DIAZEPAM
     Route: 048
  10. CIPROFIBRATO [Suspect]
     Active Substance: CIPROFIBRATE
     Route: 048
  11. METFORMINA [Concomitant]
     Active Substance: METFORMIN HYDROCHLORIDE
     Indication: DIABETES MELLITUS
     Route: 048
  12. ATENSINA [Suspect]
     Active Substance: CLONIDINE
     Route: 048
  13. AMLODIPINA [Concomitant]
     Active Substance: AMLODIPINE BESYLATE
     Route: 048
  14. AMITRIPTILINA [Concomitant]
     Active Substance: AMITRIPTYLINE HYDROCHLORIDE
     Indication: DEPRESSION
     Route: 048
     Dates: start: 2013

REACTIONS (13)
  - Hypertension [Recovered/Resolved]
  - Groin pain [Not Recovered/Not Resolved]
  - Drug ineffective [Recovered/Resolved]
  - Nausea [Recovered/Resolved]
  - Headache [Not Recovered/Not Resolved]
  - Blood pressure abnormal [Recovered/Resolved]
  - Pain in extremity [Not Recovered/Not Resolved]
  - Cystitis noninfective [Unknown]
  - Neck pain [Recovered/Resolved]
  - Vein disorder [Not Recovered/Not Resolved]
  - Back pain [Recovered/Resolved]
  - Pain [Recovered/Resolved]
  - Abdominal pain upper [Recovered/Resolved]

NARRATIVE: CASE EVENT DATE: 201804
